FAERS Safety Report 15974405 (Version 3)
Quarter: 2019Q1

REPORT INFORMATION
  Report Type: Report from Study
  Country: None (occurrence: GB)
  Receive Date: 20190218
  Receipt Date: 20190226
  Transmission Date: 20190418
  Serious: Yes (Hospitalization)
  Sender: FDA-Public Use
  Company Number: GB-ABBVIE-19K-167-2666725-00

PATIENT
  Age: 58 Year
  Sex: Female

DRUGS (1)
  1. HUMIRA [Suspect]
     Active Substance: ADALIMUMAB
     Indication: COLITIS ULCERATIVE
     Route: 058
     Dates: end: 2019

REACTIONS (4)
  - Arthralgia [Unknown]
  - Pneumonia [Unknown]
  - Pleurisy [Unknown]
  - Joint stiffness [Unknown]

NARRATIVE: CASE EVENT DATE: 201902
